FAERS Safety Report 19774652 (Version 1)
Quarter: 2021Q3

REPORT INFORMATION
  Report Type: Spontaneous
  Country: PK (occurrence: PK)
  Receive Date: 20210901
  Receipt Date: 20210901
  Transmission Date: 20211014
  Serious: Yes (Other)
  Sender: FDA-Public Use
  Company Number: PK-NOVOPROD-841381

PATIENT
  Age: 55 Year
  Sex: Male
  Weight: 70 kg

DRUGS (1)
  1. NOVOMIX 30 FLEXPEN [Suspect]
     Active Substance: INSULIN ASPART
     Indication: DIABETES MELLITUS
     Dosage: 24 UNITS AT NIGHT
     Route: 058

REACTIONS (3)
  - Hypoaesthesia [Not Recovered/Not Resolved]
  - Tremor [Not Recovered/Not Resolved]
  - Musculoskeletal stiffness [Not Recovered/Not Resolved]
